FAERS Safety Report 9684688 (Version 1)
Quarter: 2013Q4

REPORT INFORMATION
  Report Type: Spontaneous
  Country: IE (occurrence: IE)
  Receive Date: 20131112
  Receipt Date: 20131112
  Transmission Date: 20140711
  Serious: Yes (Hospitalization)
  Sender: FDA-Public Use
  Company Number: IE-MYLANLABS-2013S1024675

PATIENT
  Age: 76 Year
  Sex: Female

DRUGS (2)
  1. TAMOXIFEN [Suspect]
     Indication: INVASIVE DUCTAL BREAST CARCINOMA
     Route: 065
  2. TAMOXIFEN [Suspect]
     Indication: LOBULAR BREAST CARCINOMA IN SITU
     Route: 065

REACTIONS (2)
  - Uterine cancer [Unknown]
  - Metastases to lung [Unknown]
